FAERS Safety Report 17005731 (Version 1)
Quarter: 2019Q4

REPORT INFORMATION
  Report Type: Spontaneous
  Country: AT (occurrence: AT)
  Receive Date: 20191107
  Receipt Date: 20191107
  Transmission Date: 20200122
  Serious: Yes (Death, Other)
  Sender: FDA-Public Use
  Company Number: AT-MYLANLABS-2019M1106002

PATIENT
  Age: 72 Year
  Sex: Female

DRUGS (1)
  1. EVEROLIMUS. [Suspect]
     Active Substance: EVEROLIMUS
     Indication: EXTRANODAL MARGINAL ZONE B-CELL LYMPHOMA (MALT TYPE)
     Dosage: UNK
     Route: 065

REACTIONS (7)
  - Extranodal marginal zone B-cell lymphoma (MALT type) [Fatal]
  - Diffuse large B-cell lymphoma [Fatal]
  - Malignant neoplasm progression [Fatal]
  - Metastases to lymph nodes [Unknown]
  - Product use in unapproved indication [Unknown]
  - Metastases to bone marrow [Unknown]
  - Metastases to spleen [Unknown]
